FAERS Safety Report 8401483-2 (Version None)
Quarter: 2012Q2

REPORT INFORMATION
  Report Type: 
  Country: None (occurrence: None)
  Receive Date: 20120530
  Receipt Date: 20120530
  Transmission Date: 20120825
  Serious: Yes (Life-Threatening, Hospitalization)
  Sender: FDA-Public Use
  Company Number: None

PATIENT
  Age: 58 Year
  Sex: Female
  Weight: 104.3273 kg

DRUGS (1)
  1. EXFORGE [Suspect]
     Indication: HYPERTENSION
     Dosage: 1 PER DAY PO
     Route: 048
     Dates: start: 20080109, end: 20120524

REACTIONS (5)
  - SWOLLEN TONGUE [None]
  - SPEECH DISORDER [None]
  - ASPHYXIA [None]
  - PHARYNGEAL OEDEMA [None]
  - DYSPNOEA [None]
